FAERS Safety Report 10728844 (Version 1)
Quarter: 2015Q1

REPORT INFORMATION
  Report Type: Spontaneous
  Country: US (occurrence: None)
  Receive Date: 20150120
  Receipt Date: 20150120
  Transmission Date: 20150721
  Serious: Yes (Hospitalization, Disabling, Other)
  Sender: FDA-Public Use
  Company Number: None

PATIENT
  Age: 22 Year
  Sex: Male
  Weight: 77.11 kg

DRUGS (1)
  1. LARIAM [Suspect]
     Active Substance: MEFLOQUINE HYDROCHLORIDE
     Indication: MALARIA PROPHYLAXIS
     Dosage: 1 PILL PER WEEK
     Route: 048
     Dates: start: 201305, end: 201308

REACTIONS (15)
  - Ear discomfort [None]
  - Anxiety [None]
  - Feeling abnormal [None]
  - Abnormal dreams [None]
  - Headache [None]
  - Pain in jaw [None]
  - Depression [None]
  - Angina pectoris [None]
  - Tremor [None]
  - Apparent death [None]
  - Nausea [None]
  - Insomnia [None]
  - Vertigo [None]
  - Nightmare [None]
  - Fear [None]
